FAERS Safety Report 20904173 (Version 1)
Quarter: 2022Q2

REPORT INFORMATION
  Report Type: Spontaneous
  Country: CN (occurrence: CN)
  Receive Date: 20220602
  Receipt Date: 20220602
  Transmission Date: 20220721
  Serious: Yes (Other)
  Sender: FDA-Public Use
  Company Number: CN-009507513-2205CHN007750

PATIENT
  Age: 22 Year
  Sex: Male

DRUGS (4)
  1. IMIPENEM AND CILASTATIN [Suspect]
     Active Substance: CILASTATIN SODIUM\IMIPENEM
     Indication: Pneumonia klebsiella
     Dosage: 1 GRAM, Q8H
     Route: 042
     Dates: start: 2021, end: 2021
  2. TIGECYCLINE [Concomitant]
     Active Substance: TIGECYCLINE
     Indication: Pneumonia klebsiella
     Dosage: 100 MILLIGRAM, Q12H
     Route: 041
     Dates: start: 2021, end: 2021
  3. AVIBACTAM SODIUM\CEFTAZIDIME [Concomitant]
     Active Substance: AVIBACTAM SODIUM\CEFTAZIDIME
     Indication: Pneumonia klebsiella
     Dosage: 2.5 GRAM, Q8H
     Dates: start: 2021, end: 2021
  4. AZTREONAM [Concomitant]
     Active Substance: AZTREONAM
     Indication: Pneumonia klebsiella
     Dosage: 2 GRAM, Q8H
     Dates: start: 2021, end: 2021

REACTIONS (2)
  - Pathogen resistance [Unknown]
  - Product use in unapproved indication [Unknown]

NARRATIVE: CASE EVENT DATE: 20210101
